FAERS Safety Report 12073072 (Version 1)
Quarter: 2016Q1

REPORT INFORMATION
  Report Type: Report from Study
  Country: VE (occurrence: VE)
  Receive Date: 20160212
  Receipt Date: 20160212
  Transmission Date: 20160526
  Serious: Yes (Hospitalization)
  Sender: FDA-Public Use
  Company Number: VE-ABBVIE-16K-178-1556654-00

PATIENT
  Age: 75 Year
  Sex: Female
  Weight: 63 kg

DRUGS (1)
  1. HUMIRA [Suspect]
     Active Substance: ADALIMUMAB
     Indication: PSORIASIS
     Route: 058
     Dates: start: 201207, end: 201511

REACTIONS (2)
  - Catheter placement [Recovered/Resolved]
  - Intervertebral disc protrusion [Recovered/Resolved]

NARRATIVE: CASE EVENT DATE: 20151201
